FAERS Safety Report 17213474 (Version 5)
Quarter: 2020Q1

REPORT INFORMATION
  Report Type: Spontaneous
  Country: US (occurrence: US)
  Receive Date: 20191230
  Receipt Date: 20200326
  Transmission Date: 20200409
  Serious: Yes (Other)
  Sender: FDA-Public Use
  Company Number: US-JNJFOC-20191239564

PATIENT
  Sex: Female

DRUGS (2)
  1. METFORMIN [Interacting]
     Active Substance: METFORMIN HYDROCHLORIDE
     Indication: DIABETES MELLITUS
     Route: 065
  2. INVEGA SUSTENNA [Suspect]
     Active Substance: PALIPERIDONE PALMITATE
     Indication: SCHIZOAFFECTIVE DISORDER
     Route: 030
     Dates: start: 202001, end: 202001

REACTIONS (10)
  - Off label use [Unknown]
  - Loss of personal independence in daily activities [Not Recovered/Not Resolved]
  - Inappropriate schedule of product administration [Unknown]
  - Hyperphagia [Not Recovered/Not Resolved]
  - Diabetes mellitus [Unknown]
  - Drug hypersensitivity [Unknown]
  - Diabetic complication [Recovered/Resolved]
  - Unevaluable event [Not Recovered/Not Resolved]
  - Agitation [Unknown]
  - Drug interaction [Unknown]

NARRATIVE: CASE EVENT DATE: 202001
